FAERS Safety Report 9280123 (Version 1)
Quarter: 2013Q2

REPORT INFORMATION
  Report Type: Spontaneous
  Country: US (occurrence: None)
  Receive Date: 20130507
  Receipt Date: 20130507
  Transmission Date: 20140414
  Serious: Yes (Other)
  Sender: FDA-Public Use
  Company Number: None

PATIENT
  Age: 55 Year
  Sex: Male
  Weight: 98.88 kg

DRUGS (1)
  1. PENTASA [Suspect]
     Indication: COLITIS ULCERATIVE
     Dosage: 4 CAPSULES
     Dates: start: 20130404

REACTIONS (6)
  - Gastric disorder [None]
  - Haematochezia [None]
  - Muscle spasms [None]
  - Arthralgia [None]
  - Tendonitis [None]
  - Gait disturbance [None]
